FAERS Safety Report 16245417 (Version 1)
Quarter: 2019Q2

REPORT INFORMATION
  Report Type: Spontaneous
  Country: US (occurrence: US)
  Receive Date: 20190426
  Receipt Date: 20190426
  Transmission Date: 20190711
  Serious: No
  Sender: FDA-Public Use
  Company Number: US-TARO-2019TAR00073

PATIENT
  Age: 62 Year
  Sex: Female

DRUGS (3)
  1. ETODOLAC TABLETS 400 MG [Suspect]
     Active Substance: ETODOLAC
     Indication: ARTHRITIS
     Dosage: 400 MG, 2X/DAY
     Route: 048
     Dates: start: 20181122
  2. MULTIVITAMINS [Concomitant]
     Active Substance: VITAMINS
  3. NIASPAN [Concomitant]
     Active Substance: NIACIN

REACTIONS (6)
  - Product substitution issue [Not Recovered/Not Resolved]
  - Arthralgia [Not Recovered/Not Resolved]
  - Musculoskeletal stiffness [Not Recovered/Not Resolved]
  - Musculoskeletal pain [Not Recovered/Not Resolved]
  - Back pain [Not Recovered/Not Resolved]
  - Drug ineffective [Not Recovered/Not Resolved]

NARRATIVE: CASE EVENT DATE: 20181122
